FAERS Safety Report 24693806 (Version 3)
Quarter: 2025Q1

REPORT INFORMATION
  Report Type: Report from Study
  Country: US (occurrence: US)
  Receive Date: 20241204
  Receipt Date: 20250213
  Transmission Date: 20250409
  Serious: Yes (Death, Other)
  Sender: ACADIA PHARMACEUTICALS
  Company Number: US-ACADIA PHARMACEUTICALS INC.-ACA-2024-PIM-007693

PATIENT
  Age: 62 Year
  Sex: Male

DRUGS (23)
  1. NUPLAZID [Suspect]
     Active Substance: PIMAVANSERIN TARTRATE
     Indication: Parkinson^s disease
     Dosage: 34 MILLIGRAM, QD
     Route: 048
     Dates: start: 2018
  2. TYLENOL [Concomitant]
     Active Substance: ACETAMINOPHEN
  3. CHOLECALCIFEROL [Concomitant]
     Active Substance: CHOLECALCIFEROL
  4. KLONOPIN [Concomitant]
     Active Substance: CLONAZEPAM
  5. NEURONTIN [Concomitant]
     Active Substance: GABAPENTIN
  6. QUETIAPINE [Concomitant]
     Active Substance: QUETIAPINE
  7. EXELON [Concomitant]
     Active Substance: RIVASTIGMINE TARTRATE
  8. TYLENOL [Concomitant]
     Active Substance: ACETAMINOPHEN
  9. ALMACONE [Concomitant]
     Active Substance: ALUMINUM HYDROXIDE\DIMETHICONE\MAGNESIUM HYDROXIDE
  10. TEGRETOL [Concomitant]
     Active Substance: CARBAMAZEPINE
  11. TEGRETOL [Concomitant]
     Active Substance: CARBAMAZEPINE
  12. VITAMIN D3 [Concomitant]
     Active Substance: CHOLECALCIFEROL
  13. ROBITUSSIN (GUAIFENESIN) [Concomitant]
     Active Substance: GUAIFENESIN
  14. MOTRIN [Concomitant]
     Active Substance: IBUPROFEN
  15. MOTRIN [Concomitant]
     Active Substance: IBUPROFEN
  16. ADVIL [Concomitant]
     Active Substance: IBUPROFEN
  17. ADVIL [Concomitant]
     Active Substance: IBUPROFEN
  18. MOBIC [Concomitant]
     Active Substance: MELOXICAM
  19. MIRALAX [Concomitant]
     Active Substance: POLYETHYLENE GLYCOL 3350
  20. SEROQUEL [Concomitant]
     Active Substance: QUETIAPINE FUMARATE
  21. SEROQUEL [Concomitant]
     Active Substance: QUETIAPINE FUMARATE
  22. SODIUM CHLORIDE [Concomitant]
     Active Substance: SODIUM CHLORIDE
  23. FLOMAX [Concomitant]
     Active Substance: TAMSULOSIN HYDROCHLORIDE

REACTIONS (4)
  - Death [Fatal]
  - Arrhythmia [Not Recovered/Not Resolved]
  - Rhinorrhoea [Not Recovered/Not Resolved]
  - Illness [Not Recovered/Not Resolved]

NARRATIVE: CASE EVENT DATE: 20241120
